FAERS Safety Report 10661524 (Version 3)
Quarter: 2015Q2

REPORT INFORMATION
  Report Type: Report from Study
  Country: CN (occurrence: CN)
  Receive Date: 20141218
  Receipt Date: 20150421
  Transmission Date: 20150821
  Serious: Yes (Other)
  Sender: FDA-Public Use
  Company Number: PHHY2014CN164421

PATIENT
  Age: 1 Day
  Sex: Male

DRUGS (2)
  1. TYZEKA [Suspect]
     Active Substance: TELBIVUDINE
     Dosage: MOTHER DOSE: 600 MG QD
     Route: 064
     Dates: start: 20131203
  2. BARACLUDE [Suspect]
     Active Substance: ENTECAVIR
     Dosage: MOTHER DOSE: 0.5 MG QD
     Route: 064
     Dates: start: 20130815, end: 20131202

REACTIONS (4)
  - Foetal exposure during pregnancy [Unknown]
  - Pneumothorax [Recovered/Resolved]
  - Pneumonia aspiration [Recovered/Resolved]
  - Premature baby [Unknown]

NARRATIVE: CASE EVENT DATE: 20140714
